FAERS Safety Report 16192270 (Version 1)
Quarter: 2019Q2

REPORT INFORMATION
  Report Type: Spontaneous
  Country: US (occurrence: US)
  Receive Date: 20190412
  Receipt Date: 20190412
  Transmission Date: 20190711
  Serious: No
  Sender: FDA-Public Use
  Company Number: US-KVK-TECH, INC-2065753

PATIENT
  Sex: Male

DRUGS (1)
  1. OXYCODONE HYDROCHLORIDE. [Suspect]
     Active Substance: OXYCODONE HYDROCHLORIDE
     Indication: PRODUCT USED FOR UNKNOWN INDICATION
     Route: 048

REACTIONS (5)
  - Product taste abnormal [Unknown]
  - Tongue discomfort [Unknown]
  - Product odour abnormal [Unknown]
  - Drug ineffective [Unknown]
  - Drug withdrawal syndrome [Not Recovered/Not Resolved]
